FAERS Safety Report 8859381 (Version 1)
Quarter: 2012Q4

REPORT INFORMATION
  Report Type: 
  Country: PT (occurrence: PT)
  Receive Date: 20121024
  Receipt Date: 20121024
  Transmission Date: 20130627
  Serious: Yes (Life-Threatening)
  Sender: FDA-Public Use
  Company Number: PT-009507513-1210PRT010282

PATIENT
  Age: 59 Year
  Sex: Male
  Weight: 72 kg

DRUGS (10)
  1. IVEMEND [Suspect]
     Route: 042
     Dates: start: 20121017, end: 20121017
  2. ACTRAPID [Concomitant]
     Dosage: conforme controlo
  3. NOLOTIL [Concomitant]
     Dosage: Em SOS
     Route: 042
  4. VANCOMYCIN [Concomitant]
     Route: 042
     Dates: start: 20121011
  5. ENOXAPARIN SODIUM [Concomitant]
     Route: 058
     Dates: start: 20120929
  6. ONDANSETRON [Concomitant]
     Route: 042
     Dates: start: 20121003
  7. ESOMEPRAZOLE [Concomitant]
     Route: 042
     Dates: start: 20120929
  8. METOCLOPRAMIDE [Concomitant]
     Route: 042
  9. ACETAMINOPHEN [Concomitant]
     Dosage: Em S.O.S.
     Route: 042
  10. TRAMADOL HYDROCHLORIDE [Concomitant]
     Dosage: Em S.O.S.
     Route: 042

REACTIONS (5)
  - Bronchospasm [Recovering/Resolving]
  - Dyspnoea [Recovering/Resolving]
  - Hypotension [Recovering/Resolving]
  - Malaise [Recovering/Resolving]
  - Vomiting [Recovering/Resolving]
